FAERS Safety Report 14032134 (Version 3)
Quarter: 2017Q4

REPORT INFORMATION
  Report Type: Spontaneous
  Country: CA (occurrence: CA)
  Receive Date: 20171002
  Receipt Date: 20171023
  Transmission Date: 20180321
  Serious: Yes (Hospitalization)
  Sender: FDA-Public Use
  Company Number: CA-PFIZER INC-2017233790

PATIENT
  Age: 79 Year
  Sex: Female

DRUGS (22)
  1. SALBUTAMOL TEVA [Concomitant]
     Active Substance: ALBUTEROL
     Dosage: 2-4 INHALATIONS AT 4-6 HOURS, AS NEEDED
     Route: 055
     Dates: start: 20170920
  2. MAR CITALOPRAM [Concomitant]
     Dosage: 20 MG, 1X/DAY (IN THE MORNING WHEN BREAKFAST)
     Dates: start: 20170919
  3. INNOHEP [Concomitant]
     Active Substance: TINZAPARIN SODIUM
     Dosage: 1 DF, 1X/DAY (IN THE MORNING)
     Route: 058
     Dates: start: 20170920
  4. SANDOZ CANDESARTAN PLUS [Concomitant]
     Active Substance: CANDESARTAN CILEXETIL\HYDROCHLOROTHIAZIDE
     Dosage: 1 DF, 1X/DAY (IN THE MORNING)
     Dates: start: 20170920
  5. DEXILANT [Concomitant]
     Active Substance: DEXLANSOPRAZOLE
     Dosage: 30 MG, 1X/DAY (IN THE MORNING)
     Dates: start: 20170919
  6. STATEX [Concomitant]
     Active Substance: MORPHINE SULFATE
     Indication: PAIN
     Dosage: 5 MG, AS NEEDED (AT 4 HOURS IF NEEDED)
     Route: 048
     Dates: start: 20170920
  7. SANDOZ PRAMIPEXOLE [Concomitant]
     Dosage: 0.25 MG, 1X/DAY (AT BEDTIME)
     Dates: start: 20170919
  8. RIVA ALENDRONATE [Concomitant]
     Dosage: 70 MG, WEEKLY (SAME DAY EVERY WEEK, 30 MINUTES BEFORE BREAKFAST)
     Dates: start: 20170919
  9. MAR LETROZOLE [Concomitant]
     Dosage: 2.5 MG, 1X/DAY (SAME HOUR, SOUP)
     Dates: start: 20170919
  10. LORAZEPAM TEVA GENERICS BELGIUM [Concomitant]
     Dosage: 0.5 MG, 1X/DAY AS NEEDED AT BEDTIME
     Dates: start: 20170713
  11. IBRANCE [Suspect]
     Active Substance: PALBOCICLIB
     Indication: BREAST CANCER METASTATIC
     Dosage: 125 MG, CYCLIC (1X/DAY WHEN EATING FOR 21 DAYS FOLLOWED BY 7 DAYS OFF)
     Dates: start: 20170622, end: 2017
  12. RIVA-LOPERAMIDE [Concomitant]
     Dosage: 2 TABLETS IMMEDIATELY IF DIARRHEA AND 1 TABLET IF NEEDED AFTER EACH LOOSE STOOLS
     Route: 048
     Dates: start: 20170921
  13. SYMBICORT [Concomitant]
     Active Substance: BUDESONIDE\FORMOTEROL FUMARATE DIHYDRATE
     Dosage: 2 DF, 2X/DAY (MORNING AND EVENING. RINSE MOUTH AFTER USAGE)
     Route: 055
     Dates: start: 20170920
  14. BIOCAL-D [Concomitant]
     Dosage: 1 DF, 2X/DAY (MIDDAY AND DINNER WHEN EATING)
     Dates: start: 20170919
  15. JAMP VITAMIN B12 [Concomitant]
     Dosage: 1200 UG, 1X/DAY (IN THE MORNING WHEN BREAKFAST)
     Dates: start: 20170919
  16. AZITHROMYCINE TEVA [Concomitant]
     Dosage: 250 MG, THREE TIMES WEEKLY (MONDAY, WEDNESDAY AND FRIDAY, REGULARLY)
     Route: 048
     Dates: start: 20170919
  17. SPIRIVA [Concomitant]
     Active Substance: TIOTROPIUM BROMIDE MONOHYDRATE
     Dosage: 1 DF, 1X/DAY (SAME HOUR, EACH DAY, REGULARLY)
     Route: 055
     Dates: start: 20170920
  18. ACETAMINOPHENE [Concomitant]
     Indication: PAIN
     Dosage: 1000 MG, 4X/DAY (AT 6 HOURS REGULARLY)
     Dates: start: 20170920
  19. MAR DOMPERIDONE [Concomitant]
     Dosage: 10 MG, 4X/DAY (30 MINUTES BEFORE MEAL)
     Dates: start: 20170919
  20. EURO DOCUSATE C [Concomitant]
     Indication: CONSTIPATION
     Dosage: 200 MG, 1X/DAY (AT BEDTIME)
     Dates: start: 20170919
  21. MONTELUKAST [Concomitant]
     Active Substance: MONTELUKAST SODIUM
     Dosage: 10 MG, 1X/DAY (AT BEDTIME)
     Route: 048
     Dates: start: 20170919
  22. APO ROSUVASTATIN [Concomitant]
     Dosage: 40 MG, 1X/DAY (SAME HOUR, EVERY DAY, AT BEDTIME)
     Dates: start: 20170919

REACTIONS (2)
  - Pulmonary embolism [Unknown]
  - Product use in unapproved indication [Unknown]

NARRATIVE: CASE EVENT DATE: 2017
